FAERS Safety Report 4748794-X (Version None)
Quarter: 2005Q3

REPORT INFORMATION
  Report Type: 
  Country: None (occurrence: None)
  Receive Date: 20050812
  Receipt Date: 20050630
  Transmission Date: 20060218
  Serious: Yes (Life-Threatening, Hospitalization)
  Sender: FDA-Public Use
  Company Number: 409655

PATIENT
  Age: 44 Year
  Sex: Male
  Weight: 97 kg

DRUGS (4)
  1. PEGASYS [Suspect]
     Indication: DRUG USE FOR UNKNOWN INDICATION
     Dosage: 4 DOSE FORM 1 PER ONE DOSE SUBCUTANEOUS
     Route: 058
     Dates: start: 20050629, end: 20050629
  2. XANAX [Concomitant]
  3. ALCOHOL [Concomitant]
  4. UNSPECIFIED DRUGS (GENERIC UNKNOWN) [Concomitant]

REACTIONS (2)
  - INTENTIONAL MISUSE [None]
  - OVERDOSE [None]
